FAERS Safety Report 13074369 (Version 1)
Quarter: 2016Q4

REPORT INFORMATION
  Report Type: Report from Study
  Country: US (occurrence: US)
  Receive Date: 20161230
  Receipt Date: 20161230
  Transmission Date: 20170207
  Serious: Yes (Other)
  Sender: FDA-Public Use
  Company Number: US-VELOXIS PHARMACEUTICALS-1061406

PATIENT
  Age: 54 Year
  Sex: Male

DRUGS (26)
  1. GLUCAGON. [Concomitant]
     Active Substance: GLUCAGON
  2. ONDANSETRON [Concomitant]
     Active Substance: ONDANSETRON
  3. PROMETHAZINE [Concomitant]
     Active Substance: PROMETHAZINE\PROMETHAZINE HYDROCHLORIDE
  4. FAMOTIDINE. [Concomitant]
     Active Substance: FAMOTIDINE
  5. OXYCODONE AND ACETAMINOPHEN [Concomitant]
     Active Substance: ACETAMINOPHEN\OXYCODONE HYDROCHLORIDE
  6. IPRATROPIUM BROMIDE/ALBUTEROL SULFATE [Concomitant]
     Active Substance: ALBUTEROL SULFATE\IPRATROPIUM BROMIDE
  7. DOCUSATE SODIUM. [Concomitant]
     Active Substance: DOCUSATE SODIUM
  8. DOCUSATE SODIUM AND SENNA [Concomitant]
     Active Substance: DOCUSATE SODIUM\SENNOSIDES
  9. VALGANCICLOVIR (VALACYCLOVIR HYDROCHLORIDE) [Concomitant]
     Active Substance: VALACYCLOVIR HYDROCHLORIDE
  10. CIPROFLOXACIN. [Concomitant]
     Active Substance: CIPROFLOXACIN
  11. HEPARIN [Concomitant]
     Active Substance: HEPARIN SODIUM
  12. HYDRALAZINE [Concomitant]
     Active Substance: HYDRALAZINE HYDROCHLORIDE
  13. INSULIN LISPRO [Concomitant]
     Active Substance: INSULIN LISPRO
  14. ENVARSUS XR [Suspect]
     Active Substance: TACROLIMUS
     Indication: PROPHYLAXIS AGAINST TRANSPLANT REJECTION
  15. OXYCODONE AND ACETAMINOPHEN [Concomitant]
     Active Substance: ACETAMINOPHEN\OXYCODONE HYDROCHLORIDE
  16. DORZOLAMIDE TIMOLOL [Concomitant]
     Active Substance: DORZOLAMIDE
  17. FAMOTIDINE. [Concomitant]
     Active Substance: FAMOTIDINE
  18. HYDRALAZINE [Concomitant]
     Active Substance: HYDRALAZINE HYDROCHLORIDE
  19. MYCOPHENOLATE MOFETIL. [Concomitant]
     Active Substance: MYCOPHENOLATE MOFETIL
  20. DEXTROSE. [Concomitant]
     Active Substance: DEXTROSE
  21. NIFEDIPINE. [Concomitant]
     Active Substance: NIFEDIPINE
  22. NYSTATIN. [Concomitant]
     Active Substance: NYSTATIN
  23. IPRATROPIUM BROMIDE/ALBUTEROL SULFATE [Concomitant]
     Active Substance: ALBUTEROL SULFATE\IPRATROPIUM BROMIDE
  24. LABETALOL [Concomitant]
     Active Substance: LABETALOL\LABETALOL HYDROCHLORIDE
  25. METOPROLOL. [Concomitant]
     Active Substance: METOPROLOL
  26. SULFAMETHOXAZOLE AND TRIMETHOPRIM [Concomitant]
     Active Substance: SULFAMETHOXAZOLE\TRIMETHOPRIM

REACTIONS (2)
  - Hypertensive crisis [Unknown]
  - Myocardial infarction [Unknown]
